FAERS Safety Report 5098048-X (Version None)
Quarter: 2006Q3

REPORT INFORMATION
  Report Type: 
  Country: None (occurrence: None)
  Receive Date: 20060906
  Receipt Date: 20060329
  Transmission Date: 20061208
  Serious: No
  Sender: FDA-Public Use
  Company Number: US-GLAXOSMITHKLINE-A0599558A

PATIENT
  Age: 73 Year
  Sex: Male

DRUGS (3)
  1. REQUIP [Suspect]
     Indication: EJACULATION DISORDER
     Dosage: .25MG PER DAY
     Route: 048
  2. LEXAPRO [Concomitant]
  3. MULTIPLE MEDICATIONS [Concomitant]

REACTIONS (2)
  - DRUG INEFFECTIVE [None]
  - LIBIDO INCREASED [None]
